FAERS Safety Report 21579550 (Version 1)
Quarter: 2022Q4

REPORT INFORMATION
  Report Type: Report from Study
  Country: US (occurrence: US)
  Receive Date: 20221110
  Receipt Date: 20221110
  Transmission Date: 20230113
  Serious: No
  Sender: FDA-Public Use
  Company Number: US-ABBVIE-22K-163-4454126-00

PATIENT
  Sex: Male

DRUGS (2)
  1. SKYRIZI [Suspect]
     Active Substance: RISANKIZUMAB-RZAA
     Indication: Psoriasis
     Dosage: FORM STRENGTH: 150 MILLIGRAM?WEEK ZERO?ONE IN ONCE FREQUENCY
     Route: 058
     Dates: start: 20220523, end: 20220523
  2. SKYRIZI [Suspect]
     Active Substance: RISANKIZUMAB-RZAA
     Dosage: FORM STRENGTH: 150 MILLIGRAM?WEEK FOUR ?ONE IN ONCE FREQUENCY
     Route: 058
     Dates: start: 20220903, end: 20220903

REACTIONS (9)
  - Skin burning sensation [Not Recovered/Not Resolved]
  - Fatigue [Unknown]
  - Pain of skin [Unknown]
  - Erythema [Unknown]
  - Pruritus [Recovering/Resolving]
  - Fall [Unknown]
  - Joint injury [Unknown]
  - Gout [Unknown]
  - Headache [Unknown]

NARRATIVE: CASE EVENT DATE: 20220101
